FAERS Safety Report 6041839-9 (Version None)
Quarter: 2009Q1

REPORT INFORMATION
  Report Type: 
  Country: None (occurrence: None)
  Receive Date: 20090116
  Receipt Date: 20081218
  Transmission Date: 20090719
  Serious: Yes (Death)
  Sender: FDA-Public Use
  Company Number: AU-PFIZER INC-2009150360

PATIENT

DRUGS (1)
  1. ARTHROTEC [Suspect]
     Dosage: UNK
     Dates: start: 19990111, end: 19990125

REACTIONS (4)
  - ANAEMIA [None]
  - HAEMATEMESIS [None]
  - MELAENA [None]
  - OESOPHAGITIS ULCERATIVE [None]
